FAERS Safety Report 5821664-1 (Version None)
Quarter: 2008Q3

REPORT INFORMATION
  Report Type: 
  Country: None (occurrence: None)
  Receive Date: 20080714
  Receipt Date: 20071102
  Transmission Date: 20090109
  Serious: Yes (Hospitalization)
  Sender: FDA-Public Use
  Company Number: 529757

PATIENT
  Age: 79 Year
  Sex: Female

DRUGS (4)
  1. BONIVA [Suspect]
     Indication: BONE DISORDER
     Dosage: 150 MG
  2. ANTIHYPERTENSIVES NOS (ANTIHYPERTENSIVES NOS) [Concomitant]
  3. CALCIUM NOS (CALCIUM) [Concomitant]
  4. 1 CONCOMITANT UNSPECIFIED DRUG (GENERIC UNKNOWN) [Concomitant]

REACTIONS (6)
  - CHEST PAIN [None]
  - HYPERHIDROSIS [None]
  - MUSCULOSKELETAL STIFFNESS [None]
  - NECK PAIN [None]
  - PAIN IN EXTREMITY [None]
  - SENSORY DISTURBANCE [None]
